FAERS Safety Report 9039315 (Version 1)
Quarter: 2013Q1

REPORT INFORMATION
  Report Type: Report from Study
  Country: US (occurrence: US)
  Receive Date: 20130129
  Receipt Date: 20130129
  Transmission Date: 20140127
  Serious: No
  Sender: FDA-Public Use
  Company Number: US-ABBOTT-12P-163-0905038-00

PATIENT
  Age: 55 Year
  Sex: Female

DRUGS (13)
  1. HUMIRA 40 MG/0.8 ML PEN [Suspect]
     Indication: CROHN^S DISEASE
     Dates: start: 20120210
  2. HUMIRA 40 MG/0.8 ML PEN [Suspect]
     Dosage: 80 MG LOADING DOSE
  3. LYRICA [Concomitant]
     Indication: PAIN
     Route: 048
  4. LYRICA [Concomitant]
     Indication: FISTULA
  5. FLEXERIL [Concomitant]
     Indication: PAIN
     Route: 048
  6. SYMBICORT [Concomitant]
     Indication: DYSPNOEA
  7. VITAMIN C [Concomitant]
     Indication: VITAMIN SUPPLEMENTATION
     Dosage: DAILY
     Route: 048
  8. VITAMIN D [Concomitant]
     Indication: VITAMIN SUPPLEMENTATION
     Dosage: DAILY
     Route: 048
  9. MULTIPLE VITAMIN [Concomitant]
     Indication: VITAMIN SUPPLEMENTATION
     Dosage: DAILY
     Route: 048
  10. SEROQUEL [Concomitant]
     Indication: INSOMNIA
     Dosage: DAILY
     Route: 048
  11. SEROQUEL [Concomitant]
     Indication: DEPRESSION
  12. MERCAPTOPURINE [Concomitant]
     Indication: INFLAMMATION
     Dosage: DAILY
  13. TRAZODONE [Concomitant]
     Indication: INSOMNIA
     Dosage: AT BEDTIME

REACTIONS (4)
  - Injection site pain [Recovered/Resolved]
  - Swelling face [Recovered/Resolved]
  - Local swelling [Recovered/Resolved]
  - Local swelling [Recovered/Resolved]
